FAERS Safety Report 14032106 (Version 1)
Quarter: 2017Q4

REPORT INFORMATION
  Report Type: Spontaneous
  Country: CO (occurrence: CO)
  Receive Date: 20171002
  Receipt Date: 20171002
  Transmission Date: 20180321
  Serious: Yes (Hospitalization, Other)
  Sender: FDA-Public Use
  Company Number: CO-PFIZER INC-2016579793

PATIENT
  Age: 11 Year
  Sex: Female

DRUGS (2)
  1. GENOTROPIN [Suspect]
     Active Substance: SOMATROPIN
     Dosage: 0.8 MG, UNK
     Dates: start: 201701
  2. GENOTROPIN [Suspect]
     Active Substance: SOMATROPIN
     Indication: GROWTH HORMONE DEFICIENCY
     Dosage: 0.8 - 1.0 MG, DAILY
     Route: 058
     Dates: start: 20161209

REACTIONS (10)
  - Pneumonia [Unknown]
  - Asthenia [Unknown]
  - Hypersensitivity [Unknown]
  - Injection site hypersensitivity [Unknown]
  - Dyspnoea [Unknown]
  - Eating disorder [Unknown]
  - Pyrexia [Unknown]
  - Lung disorder [Not Recovered/Not Resolved]
  - Cardiac disorder [Unknown]
  - Cardiomegaly [Not Recovered/Not Resolved]

NARRATIVE: CASE EVENT DATE: 20161209
